FAERS Safety Report 6727291-6 (Version None)
Quarter: 2010Q2

REPORT INFORMATION
  Report Type: 
  Country: None (occurrence: None)
  Receive Date: 20100517
  Receipt Date: 20100506
  Transmission Date: 20101027
  Serious: Yes (Disabling)
  Sender: FDA-Public Use
  Company Number: CA-ASTRAZENECA-2010SE20846

PATIENT
  Age: 71 Year
  Sex: Female
  Weight: 77.1 kg

DRUGS (4)
  1. ARIMIDEX [Suspect]
     Route: 048
  2. ASPIRIN [Concomitant]
  3. HYZAAR [Concomitant]
     Route: 048
  4. SIMVASTATIN [Concomitant]
     Route: 048

REACTIONS (2)
  - HOT FLUSH [None]
  - MUSCULAR WEAKNESS [None]
